FAERS Safety Report 6199222-1 (Version None)
Quarter: 2009Q2

REPORT INFORMATION
  Report Type: 
  Country: None (occurrence: None)
  Receive Date: 20090519
  Receipt Date: 20090519
  Transmission Date: 20091009
  Serious: Yes (Hospitalization)
  Sender: FDA-Public Use
  Company Number: None

PATIENT
  Sex: Male
  Weight: 96.7 kg

DRUGS (8)
  1. ONCASPAR [Suspect]
     Dosage: 100 IU
     Dates: end: 20090428
  2. VINCRISTINE SULFATE [Suspect]
     Dosage: 4 MG
     Dates: end: 20090504
  3. CYCLOPHOSPHAMIDE [Suspect]
     Dosage: 4360 MG
     Dates: end: 20090508
  4. CYTARABINE [Suspect]
     Dosage: 1960 MG
     Dates: end: 20090512
  5. MERCAPTOPURINE [Suspect]
     Dosage: 1125 MG
     Dates: end: 20090512
  6. METHOTREXATE [Suspect]
     Dosage: 60 MG
     Dates: end: 20090504
  7. BACTRIM [Concomitant]
  8. IV SOLU-CORTEF [Concomitant]

REACTIONS (7)
  - ABASIA [None]
  - ANXIETY [None]
  - DRUG HYPERSENSITIVITY [None]
  - HYPOTENSION [None]
  - OSTEONECROSIS [None]
  - PYREXIA [None]
  - WRONG DRUG ADMINISTERED [None]
